FAERS Safety Report 7084888-4 (Version None)
Quarter: 2010Q4

REPORT INFORMATION
  Report Type: 
  Country: None (occurrence: None)
  Receive Date: 20101027
  Receipt Date: 20101012
  Transmission Date: 20110411
  Serious: Yes (Other)
  Sender: FDA-Public Use
  Company Number: 011547

PATIENT
  Age: 21 Month

DRUGS (9)
  1. BUSULFEX [Suspect]
     Indication: BONE MARROW CONDITIONING REGIMEN
     Dosage: 4 MG/KG, DAILY DOSE, INTRAVENOUS
     Route: 042
  2. ETOPOSIDE [Concomitant]
  3. CYCLOPHOSPHAMIDE [Concomitant]
  4. IMMUNOGLOBULIN G HUMAN (IMMUNOGLOBULIN G HUMAN) [Concomitant]
  5. ACYCLOVIR [Concomitant]
  6. MTX (METHOTRXATE SODIUM) [Concomitant]
  7. CYCLOSPORIN A (CICLSPORIN) [Concomitant]
  8. ATG-FRESENIUS (ANTITHYMOCYTE IMMUNOGLOBULIN) [Concomitant]
  9. METHYLPREDNISOLONE [Concomitant]

REACTIONS (1)
  - CYTOMEGALOVIRUS INFECTION [None]
